FAERS Safety Report 4742997-6 (Version None)
Quarter: 2005Q3

REPORT INFORMATION
  Report Type: 
  Country: None (occurrence: None)
  Receive Date: 20050811
  Receipt Date: 20050802
  Transmission Date: 20060218
  Serious: Yes (Other)
  Sender: FDA-Public Use
  Company Number: 2005095244

PATIENT
  Sex: Female

DRUGS (1)
  1. LIPITOR [Suspect]
     Indication: ILL-DEFINED DISORDER
     Dosage: ORAL
     Route: 048

REACTIONS (5)
  - MUSCLE ATROPHY [None]
  - MUSCLE TWITCHING [None]
  - MUSCULAR DYSTROPHY [None]
  - MUSCULAR WEAKNESS [None]
  - MYOTONIA [None]
